FAERS Safety Report 13967516 (Version 1)
Quarter: 2017Q3

REPORT INFORMATION
  Report Type: Spontaneous
  Country: CA (occurrence: CA)
  Receive Date: 20170914
  Receipt Date: 20170914
  Transmission Date: 20171128
  Serious: Yes (Other)
  Sender: FDA-Public Use
  Company Number: CA-TEVA-804692ACC

PATIENT
  Sex: Female
  Weight: 71.28 kg

DRUGS (3)
  1. QUETIAPINE XR [Suspect]
     Active Substance: QUETIAPINE
     Indication: MAJOR DEPRESSION
     Dosage: 25 MILLIGRAM DAILY;
  2. QUETIAPINE. [Suspect]
     Active Substance: QUETIAPINE
     Indication: MAJOR DEPRESSION
  3. QUETIAPINE XR [Suspect]
     Active Substance: QUETIAPINE
     Dosage: 400 MILLIGRAM DAILY;

REACTIONS (4)
  - Suicidal ideation [Unknown]
  - Product substitution issue [Unknown]
  - Depression [Unknown]
  - Insomnia [Unknown]
